FAERS Safety Report 19657603 (Version 2)
Quarter: 2022Q2

REPORT INFORMATION
  Report Type: Spontaneous
  Country: US (occurrence: US)
  Receive Date: 20210804
  Receipt Date: 20220411
  Transmission Date: 20220720
  Serious: No
  Sender: FDA-Public Use
  Company Number: US-SA-SAC20210803000710

PATIENT
  Sex: Female

DRUGS (2)
  1. CERDELGA [Suspect]
     Active Substance: ELIGLUSTAT
     Indication: Gaucher^s disease
     Dosage: 84 MG, BID
     Route: 048
     Dates: start: 20210607
  2. CERDELGA [Suspect]
     Active Substance: ELIGLUSTAT
     Dosage: 84 MG, BID
     Route: 048
     Dates: start: 202107

REACTIONS (3)
  - Gastrooesophageal reflux disease [Unknown]
  - Abdominal pain upper [Unknown]
  - Diarrhoea [Unknown]
